FAERS Safety Report 9157824 (Version 2)
Quarter: 2013Q1

REPORT INFORMATION
  Report Type: Spontaneous
  Country: US (occurrence: US)
  Receive Date: 20130312
  Receipt Date: 20130319
  Transmission Date: 20140127
  Serious: Yes (Other)
  Sender: FDA-Public Use
  Company Number: PHHY2012US082546

PATIENT
  Age: 44 None
  Sex: Female
  Weight: 70.3 kg

DRUGS (10)
  1. GILENYA [Suspect]
     Indication: RELAPSING-REMITTING MULTIPLE SCLEROSIS
     Dosage: 0.5 MG, QD
     Route: 048
     Dates: start: 20120601
  2. NEURONTIN [Concomitant]
     Dosage: 100 MG, UNK
  3. PROVIGIL [Concomitant]
     Dosage: 100 MG, UNK
  4. NORTRIPTYLIN [Concomitant]
     Dosage: 25 MG, UNK
  5. SIMVASTATIN [Concomitant]
     Dosage: 10 MG, UNK
  6. BISOPROLOL/HYDROCHLOROTHIAZID [Concomitant]
     Dosage: 5-6.25 MG
  7. VITAMIN D3 [Concomitant]
     Dosage: 2000 IU, UNK
  8. CALCIUM 600 PLUS VITAMIN D3 [Concomitant]
     Dosage: UNK UKN, UNK
  9. MULTI-VIT [Concomitant]
     Dosage: UNK UKN, UNK
  10. SEASONALE [Concomitant]
     Dosage: UNK UKN, UNK

REACTIONS (7)
  - Central nervous system lesion [Unknown]
  - Amnesia [Not Recovered/Not Resolved]
  - Dyskinesia [Not Recovered/Not Resolved]
  - Feeling abnormal [Unknown]
  - Musculoskeletal stiffness [Unknown]
  - Musculoskeletal discomfort [Unknown]
  - Fatigue [Unknown]
